FAERS Safety Report 11258202 (Version 1)
Quarter: 2015Q3

REPORT INFORMATION
  Report Type: Spontaneous
  Country: US (occurrence: None)
  Receive Date: 20150708
  Receipt Date: 20150708
  Transmission Date: 20151125
  Serious: Yes (Other)
  Sender: FDA-Public Use
  Company Number: ADR-2015-01267

PATIENT
  Age: 67 Year
  Sex: Female

DRUGS (1)
  1. BACLOFEN INTRATHECAL [Suspect]
     Active Substance: BACLOFEN
     Indication: MUSCLE SPASTICITY
     Dosage: 280 MCG/DAY

REACTIONS (8)
  - Medical device discomfort [None]
  - Device dislocation [None]
  - Somnolence [None]
  - Fractured coccyx [None]
  - Pelvic fracture [None]
  - Fall [None]
  - Muscle spasticity [None]
  - Condition aggravated [None]

NARRATIVE: CASE EVENT DATE: 20150601
